FAERS Safety Report 6948724-6 (Version None)
Quarter: 2010Q3

REPORT INFORMATION
  Report Type: 
  Country: None (occurrence: None)
  Receive Date: 20100828
  Receipt Date: 20091109
  Transmission Date: 20110219
  Serious: No
  Sender: FDA-Public Use
  Company Number: US-ABBOTT-09P-163-0608381-00

PATIENT
  Sex: Male
  Weight: 106.69 kg

DRUGS (16)
  1. NIASPAN [Suspect]
     Indication: BLOOD CHOLESTEROL INCREASED
     Dates: start: 20091026, end: 20091109
  2. ASPIRIN [Concomitant]
     Indication: ANTICOAGULANT THERAPY
  3. GEMFIBROZIL [Concomitant]
     Indication: BLOOD TRIGLYCERIDES INCREASED
  4. ATENOLOL [Concomitant]
     Indication: HYPERTENSION
  5. GLIMEPIRIDE [Concomitant]
     Indication: DIABETES MELLITUS
  6. RAMIPRIL [Concomitant]
     Indication: HYPERTENSION
  7. DIOVAN HST [Concomitant]
     Indication: HYPERTENSION
  8. HYDRALAZINE [Concomitant]
     Indication: HYPERTENSION
  9. NORVASC [Concomitant]
     Indication: HYPERTENSION
  10. FORTICAL [Concomitant]
     Indication: OSTEITIS DEFORMANS
  11. HUMALOG H INSULIN [Concomitant]
     Indication: DIABETES MELLITUS
  12. HUMALOG N INSULIN [Concomitant]
     Indication: DIABETES MELLITUS
  13. FUROSEMIDE [Concomitant]
     Indication: OEDEMA PERIPHERAL
  14. KLOR-CON [Concomitant]
     Indication: BLOOD POTASSIUM DECREASED
  15. CRESTOR [Concomitant]
     Indication: BLOOD CHOLESTEROL INCREASED
  16. FLOMAX [Concomitant]
     Indication: URINARY INCONTINENCE

REACTIONS (3)
  - BLOOD GLUCOSE INCREASED [None]
  - HOT FLUSH [None]
  - PRURITUS [None]
